FAERS Safety Report 8121773-0 (Version None)
Quarter: 2012Q1

REPORT INFORMATION
  Report Type: 
  Country: None (occurrence: None)
  Receive Date: 20120207
  Receipt Date: 20120207
  Transmission Date: 20120608
  Serious: Yes (Other)
  Sender: FDA-Public Use
  Company Number: None

PATIENT
  Sex: Male
  Weight: 92.9874 kg

DRUGS (14)
  1. FELODIPINE [Suspect]
     Indication: BLOOD PRESSURE INCREASED
     Dosage: 0.5 MG BID
     Dates: start: 19900101
  2. PRILOSEC [Concomitant]
  3. LUMIGAN [Concomitant]
  4. POTASSIUM [Concomitant]
  5. MISC. SUPPLEMENTS [Concomitant]
  6. PRAVASTATIN [Concomitant]
  7. TOPROL-XL [Concomitant]
  8. PROSCAR [Concomitant]
  9. ALPHA-LIPOIC ACID [Concomitant]
  10. METFORMIN HCL [Suspect]
     Indication: DIABETES MELLITUS
     Dosage: 125 MG BID
     Dates: start: 20110901
  11. HYTRIN [Concomitant]
  12. LISINOPRIL [Concomitant]
  13. ASPIRIN [Concomitant]
  14. ALPHAGAN [Concomitant]

REACTIONS (2)
  - OLFACTORY NERVE DISORDER [None]
  - PAROSMIA [None]
